FAERS Safety Report 24437310 (Version 1)
Quarter: 2024Q4

REPORT INFORMATION
  Report Type: Report from Study
  Country: US (occurrence: US)
  Receive Date: 20241015
  Receipt Date: 20241015
  Transmission Date: 20250115
  Serious: Yes (Hospitalization)
  Sender: SANOFI AVENTIS
  Company Number: US-REGENERON PHARMACEUTICALS, INC.-2024-100957

PATIENT
  Age: 61 Year
  Sex: Female
  Weight: 59.5 kg

DRUGS (21)
  1. UBAMATAMAB [Suspect]
     Active Substance: UBAMATAMAB
     Indication: Ovarian cancer
     Dosage: 800 MG
     Route: 042
     Dates: start: 20240701, end: 20240701
  2. UBAMATAMAB [Suspect]
     Active Substance: UBAMATAMAB
     Dosage: 20 MG, SINGLE (SPLIT DOSING; 10 MG ON C1D8/10 MG ON C1D9)
     Route: 042
     Dates: start: 20240617, end: 20240618
  3. UBAMATAMAB [Suspect]
     Active Substance: UBAMATAMAB
     Dosage: 1 MG, 1X
     Route: 042
     Dates: start: 20240611, end: 20240611
  4. UBAMATAMAB [Suspect]
     Active Substance: UBAMATAMAB
     Dosage: 800 MG, SPLIT DOSING (50 MG ON C1D15/750 MG ON C1D16)
     Route: 042
     Dates: start: 20240624, end: 20240625
  5. SARILUMAB [Suspect]
     Active Substance: SARILUMAB
     Indication: Ovarian cancer
     Dosage: 350 MG, SINGLE (SARILUMAB COHORT 1E)
     Route: 042
     Dates: start: 20240611, end: 20240611
  6. DOXYCYCLINE [Concomitant]
     Active Substance: DOXYCYCLINE
     Indication: Arthropod bite
     Dosage: UNK
     Dates: start: 20240705
  7. MINOXIDIL [Concomitant]
     Active Substance: MINOXIDIL
     Indication: Alopecia
     Dosage: 0.5 DF, QD
     Route: 048
     Dates: start: 20220101
  8. CARBOXYMETHYLCELLULOSE [Concomitant]
     Active Substance: CARBOXYMETHYLCELLULOSE
     Indication: Dry eye
     Dosage: 1 DROP, QID
     Route: 031
     Dates: start: 20240626
  9. IBUPROFEN [Concomitant]
     Active Substance: IBUPROFEN
     Indication: Abdominal pain
     Dosage: 400 MG, Q8H
     Route: 048
     Dates: start: 20240612
  10. ACETAMINOPHEN [Concomitant]
     Active Substance: ACETAMINOPHEN
     Indication: Abdominal pain
     Dosage: 350 MG, Q6H
     Route: 048
     Dates: start: 20240619
  11. DILAUDID [Concomitant]
     Active Substance: HYDROMORPHONE HYDROCHLORIDE
     Indication: Abdominal pain
     Dosage: 2 ML, Q6H
     Route: 048
     Dates: start: 20240612
  12. CARBOXYMETHYLCELLULOSE [Concomitant]
     Active Substance: CARBOXYMETHYLCELLULOSE
     Indication: Conjunctivitis
     Dosage: 1 DROP, Q6H
     Route: 031
     Dates: start: 20240612, end: 20240618
  13. DEXAMETHASONE [Concomitant]
     Active Substance: DEXAMETHASONE
     Indication: Conjunctivitis
     Dosage: 1 DROP, BID
     Route: 031
     Dates: start: 20240612
  14. RIVAROXABAN [Concomitant]
     Active Substance: RIVAROXABAN
     Indication: Pulmonary embolism
     Dosage: 20 MG, QD
     Route: 048
     Dates: start: 20170710
  15. IBANDRONATE SODIUM [Concomitant]
     Active Substance: IBANDRONATE SODIUM
     Indication: Osteoporosis
     Dosage: 150 MG, QM
     Route: 048
     Dates: start: 20180924
  16. MIRALAX [Concomitant]
     Active Substance: POLYETHYLENE GLYCOL 3350
     Indication: Constipation
     Dosage: 17 G, QD
     Route: 048
     Dates: start: 20230101
  17. LORATADINE [Concomitant]
     Active Substance: LORATADINE
     Indication: Pruritus
     Dosage: 10 MG, QD
     Route: 048
     Dates: start: 20240702
  18. DIPHENHYDRAMINE [Concomitant]
     Active Substance: DIPHENHYDRAMINE
     Indication: Pruritus
     Dosage: 25 MG, Q6H
     Route: 048
     Dates: start: 20240703
  19. LIDOCAINE\PRILOCAINE [Concomitant]
     Active Substance: LIDOCAINE\PRILOCAINE
     Indication: Prophylaxis
     Dosage: 1 APPLICATION, PRN
     Route: 061
     Dates: start: 20210809
  20. ONDANSETRON [Concomitant]
     Active Substance: ONDANSETRON
     Indication: Nausea
     Dosage: 8 MG, Q8H AS NEEDED
     Route: 048
     Dates: start: 20240612
  21. LUBRICATING PLUS [Concomitant]
     Active Substance: CARBOXYMETHYLCELLULOSE SODIUM
     Indication: Dry eye
     Dosage: 1 DROP, QID
     Route: 031
     Dates: start: 20240626

REACTIONS (2)
  - Drug reaction with eosinophilia and systemic symptoms [Recovered/Resolved]
  - Rash maculo-papular [Recovered/Resolved]

NARRATIVE: CASE EVENT DATE: 20240705
